FAERS Safety Report 13931340 (Version 1)
Quarter: 2017Q3

REPORT INFORMATION
  Report Type: Report from Study
  Country: DE (occurrence: DE)
  Receive Date: 20170903
  Receipt Date: 20170903
  Transmission Date: 20171127
  Serious: Yes (Other)
  Sender: FDA-Public Use
  Company Number: DE-DSJP-DSE-2017-132203

PATIENT

DRUGS (2)
  1. EDOXABAN [Suspect]
     Active Substance: EDOXABAN TOSYLATE
     Indication: ATRIAL FIBRILLATION
     Dosage: 60 MG, QD
     Route: 048
     Dates: start: 20170307, end: 20170503
  2. BETA BLOCKING AGENTS [Concomitant]
     Active Substance: UNSPECIFIED INGREDIENT
     Indication: HYPERTENSION

REACTIONS (3)
  - Dizziness [Recovered/Resolved]
  - Epistaxis [Recovered/Resolved]
  - Headache [Recovered/Resolved with Sequelae]

NARRATIVE: CASE EVENT DATE: 20170503
